FAERS Safety Report 6852200-9 (Version None)
Quarter: 2010Q3

REPORT INFORMATION
  Report Type: 
  Country: None (occurrence: None)
  Receive Date: 20100717
  Receipt Date: 20071128
  Transmission Date: 20110219
  Serious: Yes (Other)
  Sender: FDA-Public Use
  Company Number: US-PFIZER INC-2007094508

PATIENT
  Sex: Female
  Weight: 53.636 kg

DRUGS (4)
  1. CHANTIX [Suspect]
     Indication: EX-TOBACCO USER
     Route: 048
     Dates: start: 20071018, end: 20071022
  2. LUNESTA [Concomitant]
     Route: 048
  3. PREVACID [Concomitant]
     Route: 048
  4. VALIUM [Concomitant]
     Indication: ANXIETY
     Route: 048

REACTIONS (4)
  - ABNORMAL DREAMS [None]
  - HALLUCINATION [None]
  - RASH [None]
  - SLEEP DISORDER [None]
